FAERS Safety Report 9598249 (Version 1)
Quarter: 2013Q4

REPORT INFORMATION
  Report Type: Spontaneous
  Country: US (occurrence: US)
  Receive Date: 20131004
  Receipt Date: 20131004
  Transmission Date: 20140711
  Serious: No
  Sender: FDA-Public Use
  Company Number: US-AMGEN-USASP2013022955

PATIENT
  Age: 44 Year
  Sex: Female
  Weight: 94.79 kg

DRUGS (7)
  1. ENBREL [Suspect]
     Indication: PRODUCT USED FOR UNKNOWN INDICATION
     Dosage: 50 MG, QWK
     Route: 058
  2. CYMBALTA [Concomitant]
     Dosage: 20 MG, UNK
  3. MULTIVITAMINS, PLAIN [Concomitant]
     Dosage: UNK
  4. METHOTREXATE [Concomitant]
     Dosage: 2.5 MG, UNK
  5. PREVACID [Concomitant]
     Dosage: 30 MG, STB
  6. MOBIC [Concomitant]
     Dosage: 7.5 MG, UNK
  7. ADVAIR [Concomitant]
     Dosage: 100/50, UNK

REACTIONS (1)
  - Sinusitis [Unknown]
